FAERS Safety Report 18117780 (Version 1)
Quarter: 2020Q3

REPORT INFORMATION
  Report Type: Spontaneous
  Country: US (occurrence: US)
  Receive Date: 20200806
  Receipt Date: 20200806
  Transmission Date: 20201103
  Serious: No
  Sender: FDA-Public Use
  Company Number: US-JNJFOC-20200745128

PATIENT
  Age: 82 Year
  Sex: Male
  Weight: 63.56 kg

DRUGS (1)
  1. IMODIUM MULTI?SYMPTOM RELIEF [Suspect]
     Active Substance: DIMETHICONE\LOPERAMIDE HYDROCHLORIDE
     Indication: DIARRHOEA
     Dosage: THE PRODUCT TOOK ONE 2 MG SOFTGEL, TWICE FOR A TOTAL OF TWO DOSES
     Route: 048
     Dates: start: 20200727, end: 20200727

REACTIONS (6)
  - Diarrhoea [Recovering/Resolving]
  - Product taste abnormal [Unknown]
  - Wrong technique in product usage process [Unknown]
  - Flatulence [Recovering/Resolving]
  - Proctalgia [Recovering/Resolving]
  - Abdominal pain upper [Recovering/Resolving]
